FAERS Safety Report 9166872 (Version 1)
Quarter: 2013Q1

REPORT INFORMATION
  Report Type: Spontaneous
  Country: CA (occurrence: CA)
  Receive Date: 20130316
  Receipt Date: 20130316
  Transmission Date: 20140127
  Serious: Yes (Other)
  Sender: FDA-Public Use
  Company Number: CA-AMGEN-CANSP2013016821

PATIENT
  Age: 55 Year
  Sex: Female
  Weight: 43.18 kg

DRUGS (2)
  1. PROLIA [Suspect]
     Indication: OSTEOPOROSIS
     Dosage: 60 MG, UNK
     Dates: start: 20111007
  2. SERC                               /00141802/ [Concomitant]

REACTIONS (3)
  - Transient ischaemic attack [Unknown]
  - Vertigo [Unknown]
  - Hearing impaired [Unknown]
